FAERS Safety Report 6112947-9 (Version None)
Quarter: 2009Q1

REPORT INFORMATION
  Report Type: 
  Country: None (occurrence: None)
  Receive Date: 20090312
  Receipt Date: 20090305
  Transmission Date: 20090719
  Serious: Yes (Hospitalization, Other)
  Sender: FDA-Public Use
  Company Number: US-ELI_LILLY_AND_COMPANY-US200812000988

PATIENT
  Age: 17 Year
  Sex: Male

DRUGS (3)
  1. CYMBALTA [Suspect]
     Indication: DEPRESSION
     Dosage: 30 MG, DAILY (1/D)
     Dates: start: 20081101, end: 20080101
  2. LITHIUM [Concomitant]
  3. METACYCLINE [Concomitant]

REACTIONS (5)
  - DERMATITIS ACNEIFORM [None]
  - DIALYSIS [None]
  - INFECTIOUS MONONUCLEOSIS [None]
  - RHABDOMYOLYSIS [None]
  - SKIN EXFOLIATION [None]
